FAERS Safety Report 5740678-3 (Version None)
Quarter: 2008Q2

REPORT INFORMATION
  Report Type: 
  Country: None (occurrence: None)
  Receive Date: 20080516
  Receipt Date: 20080507
  Transmission Date: 20081010
  Serious: Yes (Hospitalization, Other)
  Sender: FDA-Public Use
  Company Number: US-AMGEN-QUU275926

PATIENT
  Sex: Female

DRUGS (29)
  1. ENBREL [Suspect]
     Indication: RHEUMATOID ARTHRITIS
     Route: 058
     Dates: start: 20040318, end: 20071201
  2. METHOTREXATE [Concomitant]
     Route: 030
     Dates: start: 19910101
  3. COREG [Concomitant]
     Route: 048
  4. ASPIRIN [Concomitant]
     Route: 048
  5. GLUCOSAMINE [Concomitant]
     Route: 048
  6. CALCIUM [Concomitant]
     Route: 048
  7. CYTOTEC [Concomitant]
     Route: 048
  8. ESTRACE [Concomitant]
     Route: 067
  9. FISH OIL [Concomitant]
  10. FOLIC ACID [Concomitant]
  11. VITAMIN CAP [Concomitant]
     Route: 048
  12. HYDROXYCHLOROQUINE SULFATE [Concomitant]
     Route: 048
  13. METAMUCIL [Concomitant]
     Route: 048
  14. NEXIUM [Concomitant]
     Route: 048
  15. PROMETRIUM [Concomitant]
     Route: 048
  16. SULFASALAZINE [Concomitant]
     Route: 048
  17. VOLTAREN [Concomitant]
     Route: 048
  18. AMCINONIDE [Concomitant]
     Route: 061
  19. DELTASONE [Concomitant]
     Route: 048
  20. ESTRACE [Concomitant]
     Route: 048
  21. FLAGYL [Concomitant]
     Route: 048
  22. OMEGA 3 [Concomitant]
     Route: 048
  23. MYCOSTATIN [Concomitant]
     Route: 048
  24. ONDANSETRON [Concomitant]
     Route: 048
  25. PERCOCET [Concomitant]
     Route: 048
  26. PHENERGAN [Concomitant]
     Route: 048
  27. UNSPECIFIED MEDICATION [Concomitant]
     Route: 048
  28. ZYRTEC [Concomitant]
     Route: 048
  29. REFRESH [Concomitant]

REACTIONS (14)
  - BACTERIAL DISEASE CARRIER [None]
  - CATARACT NUCLEAR [None]
  - DRY EYE [None]
  - ECCHYMOSIS [None]
  - ECZEMA [None]
  - INJECTION SITE PAIN [None]
  - LEUKOPENIA [None]
  - LIMB INJURY [None]
  - OSTEOMYELITIS [None]
  - RESPIRATORY TRACT INFECTION [None]
  - RHEUMATOID ARTHRITIS [None]
  - SUBCUTANEOUS NODULE [None]
  - VITREOUS DETACHMENT [None]
  - VITREOUS HAEMORRHAGE [None]
